FAERS Safety Report 9736350 (Version 2)
Quarter: 2013Q4

REPORT INFORMATION
  Report Type: Spontaneous
  Country: US (occurrence: US)
  Receive Date: 20131206
  Receipt Date: 20131223
  Transmission Date: 20140711
  Serious: Yes (Other)
  Sender: FDA-Public Use
  Company Number: US-PFIZER INC-2013348990

PATIENT
  Age: 29 Year
  Sex: Male
  Weight: 80.73 kg

DRUGS (1)
  1. XANAX [Suspect]
     Indication: ANXIETY
     Dosage: 0.1 MG, AS NEEDED
     Dates: start: 2008

REACTIONS (2)
  - Patella fracture [Unknown]
  - Malaise [Unknown]
